FAERS Safety Report 15801084 (Version 2)
Quarter: 2019Q2

REPORT INFORMATION
  Report Type: Spontaneous
  Country: US (occurrence: US)
  Receive Date: 20190109
  Receipt Date: 20190416
  Transmission Date: 20190711
  Serious: No
  Sender: FDA-Public Use
  Company Number: US-BIOGEN-2018BI00677635

PATIENT
  Sex: Female
  Weight: 63.56 kg

DRUGS (5)
  1. GABAPENTINE [Concomitant]
     Active Substance: GABAPENTIN
     Route: 050
  2. PLEGRIDY [Suspect]
     Active Substance: PEGINTERFERON BETA-1A
     Indication: MULTIPLE SCLEROSIS
     Route: 050
  3. PRILOSEC [Concomitant]
     Active Substance: OMEPRAZOLE MAGNESIUM
     Route: 050
  4. PREDNISONE. [Concomitant]
     Active Substance: PREDNISONE
     Route: 050
  5. NORCO [Concomitant]
     Active Substance: ACETAMINOPHEN\HYDROCODONE BITARTRATE
     Route: 050

REACTIONS (4)
  - Musculoskeletal disorder [Unknown]
  - Injection site swelling [Unknown]
  - Motor dysfunction [Unknown]
  - Feeling abnormal [Unknown]
